FAERS Safety Report 4788064-7 (Version None)
Quarter: 2005Q4

REPORT INFORMATION
  Report Type: 
  Country: None (occurrence: None)
  Receive Date: 20051003
  Receipt Date: 20050921
  Transmission Date: 20060501
  Serious: Yes (Other)
  Sender: FDA-Public Use
  Company Number: GXKR2005GB00959

PATIENT
  Age: 47 Year
  Sex: Male

DRUGS (11)
  1. PROTUM(PANTOPRAZOLE) UNKNOWN [Suspect]
  2. DOXAZOSIN (NGX) (DOXAZOSIN) [Suspect]
     Dosage: ORAL
     Route: 048
  3. ATENOLOL [Suspect]
     Dosage: ORAL
     Route: 048
  4. RIFAMPICIN [Suspect]
     Dosage: INTRAVENOUS
     Route: 042
  5. OMEPRAZOLE [Suspect]
  6. ZYVOX [Suspect]
     Indication: STAPHYLOCOCCAL INFECTION
     Dosage: 600 MG, BID, INTRAVENOUS
     Route: 042
     Dates: start: 20041017, end: 20041020
  7. PROCYCLIDINE HYDROCHLORIDE 2MG TAB [Suspect]
     Dosage: ORAL
     Route: 048
  8. FENTANYL [Suspect]
     Dosage: INTRAVENOUS
     Route: 042
  9. AMISULPRIDE (AMISULPRIDE) [Suspect]
     Dosage: ORAL
     Route: 048
  10. ZOPICLONE (ZOPICLOE) [Suspect]
  11. HALOPERIDOL [Suspect]

REACTIONS (2)
  - DRUG INTERACTION [None]
  - HYPERTENSION [None]
